FAERS Safety Report 17768012 (Version 1)
Quarter: 2020Q2

REPORT INFORMATION
  Report Type: Spontaneous
  Country: US (occurrence: US)
  Receive Date: 20200511
  Receipt Date: 20200511
  Transmission Date: 20200714
  Serious: No
  Sender: FDA-Public Use
  Company Number: US-UPSHER-SMITH LABORATORIES, LLC-2019USL00529

PATIENT
  Age: 72 Year
  Sex: Male
  Weight: 142.86 kg

DRUGS (5)
  1. FUROSEMIDE. [Concomitant]
     Active Substance: FUROSEMIDE
     Dosage: 3 TABLETS, 2X/WEEK (MONDAY AND FRIDAY)
  2. FUROSEMIDE. [Concomitant]
     Active Substance: FUROSEMIDE
     Dosage: 2 TABLETS, 5X/WEEK (ALL OTHER DAYS)
  3. KLOR-CON [Suspect]
     Active Substance: POTASSIUM CHLORIDE
     Dosage: 60 MG, 5X/WEEK (ALL OTHER DAYS)
     Route: 048
     Dates: start: 2019
  4. KLOR-CON [Suspect]
     Active Substance: POTASSIUM CHLORIDE
     Dosage: UNK
     Route: 048
     Dates: end: 2019
  5. KLOR-CON [Suspect]
     Active Substance: POTASSIUM CHLORIDE
     Indication: BLOOD POTASSIUM DECREASED
     Dosage: 80 MG, 2X/WEEK (MONDAY AND FRIDAY)
     Route: 048
     Dates: start: 2019

REACTIONS (4)
  - Product residue present [Unknown]
  - Constipation [Recovered/Resolved]
  - Therapeutic product effect incomplete [Not Recovered/Not Resolved]
  - Malaise [Recovering/Resolving]

NARRATIVE: CASE EVENT DATE: 20190620
